FAERS Safety Report 18667749 (Version 1)
Quarter: 2020Q4

REPORT INFORMATION
  Report Type: Other
  Country: DE (occurrence: DE)
  Receive Date: 20201228
  Receipt Date: 20201228
  Transmission Date: 20210114
  Serious: Yes (Hospitalization)
  Sender: FDA-Public Use
  Company Number: DE-ROCHE-2252761

PATIENT
  Age: 69 Year
  Sex: Female

DRUGS (21)
  1. BISOPROLOL [Concomitant]
     Active Substance: BISOPROLOL
  2. CLOPIDOGREL [Concomitant]
     Active Substance: CLOPIDOGREL BISULFATE
  3. PANTOPRAZOL [Concomitant]
     Active Substance: PANTOPRAZOLE SODIUM
  4. LEVETIRACETAM. [Concomitant]
     Active Substance: LEVETIRACETAM
  5. PREDNISOLON [Concomitant]
     Active Substance: PREDNISOLONE
  6. PREGABALIN. [Concomitant]
     Active Substance: PREGABALIN
  7. COLECALCIFEROL [Concomitant]
     Active Substance: CHOLECALCIFEROL
  8. FOLIC ACID. [Concomitant]
     Active Substance: FOLIC ACID
  9. ISOSORBIDE. [Concomitant]
     Active Substance: ISOSORBIDE
  10. ATORVASTATIN [Concomitant]
     Active Substance: ATORVASTATIN
  11. DENOSUMAB [Concomitant]
     Active Substance: DENOSUMAB
     Indication: OSTEOPOROSIS
  12. MAGNESIUM [Concomitant]
     Active Substance: MAGNESIUM
  13. RITUXIMAB. [Suspect]
     Active Substance: RITUXIMAB
     Dosage: DATE RECEIVED: 06/SEP/2020
     Route: 041
  14. RAMIPRIL. [Concomitant]
     Active Substance: RAMIPRIL
  15. THIAMAZOL [Concomitant]
     Active Substance: METHIMAZOLE
  16. METHOTREXATE. [Suspect]
     Active Substance: METHOTREXATE
     Indication: RHEUMATOID ARTHRITIS
     Route: 065
  17. RITUXIMAB. [Suspect]
     Active Substance: RITUXIMAB
     Indication: RHEUMATOID ARTHRITIS
     Route: 041
  18. SIMVASTATIN. [Concomitant]
     Active Substance: SIMVASTATIN
  19. BUPRENORPHIN [Concomitant]
     Active Substance: BUPRENORPHINE
  20. TORASEMID [Concomitant]
     Active Substance: TORSEMIDE
  21. AMITRIPTYLIN [Concomitant]
     Active Substance: AMITRIPTYLINE

REACTIONS (5)
  - Acute kidney injury [Recovered/Resolved]
  - Gastroenteritis [Recovered/Resolved]
  - Dysuria [Recovered/Resolved]
  - Escherichia urinary tract infection [Recovered/Resolved]
  - Cystitis [Recovered/Resolved]

NARRATIVE: CASE EVENT DATE: 201812
